FAERS Safety Report 7671526-2 (Version None)
Quarter: 2011Q3

REPORT INFORMATION
  Report Type: 
  Country: None (occurrence: None)
  Receive Date: 20110809
  Receipt Date: 20110809
  Transmission Date: 20111222
  Serious: Yes (Life-Threatening)
  Sender: FDA-Public Use
  Company Number: None

PATIENT
  Age: 76 Year
  Sex: Male
  Weight: 114.75 kg

DRUGS (1)
  1. GLYBURIDE [Suspect]
     Indication: TYPE 2 DIABETES MELLITUS
     Dosage: 2 TABLETS WITH MEALS
     Route: 048
     Dates: start: 20001201, end: 20110804

REACTIONS (3)
  - PRODUCT SHAPE ISSUE [None]
  - PRODUCT QUALITY ISSUE [None]
  - BLOOD GLUCOSE DECREASED [None]
